FAERS Safety Report 5602223-2 (Version None)
Quarter: 2008Q1

REPORT INFORMATION
  Report Type: 
  Country: None (occurrence: None)
  Receive Date: 20080125
  Receipt Date: 20080115
  Transmission Date: 20080703
  Serious: Yes (Hospitalization, Other)
  Sender: FDA-Public Use
  Company Number: US-ASTRAZENECA-2006UW11874

PATIENT
  Age: 63 Year
  Sex: Female
  Weight: 111.4 kg

DRUGS (28)
  1. SEROQUEL [Suspect]
     Indication: MENTAL DISORDER
     Route: 048
     Dates: start: 20060701, end: 20061101
  2. SEROQUEL [Suspect]
     Route: 048
     Dates: start: 20050101
  3. ZYPREXA [Suspect]
     Route: 048
     Dates: start: 20050101
  4. ZYPREXA [Suspect]
     Route: 048
     Dates: start: 19991203, end: 20001216
  5. ZYPREXA [Suspect]
     Route: 048
     Dates: start: 20000510, end: 20010524
  6. ZYPREXA [Suspect]
     Route: 048
     Dates: start: 20000803, end: 20010817
  7. ZYPREXA [Suspect]
     Route: 048
     Dates: start: 19991103, end: 19991116
  8. ZYPREXA [Suspect]
     Route: 048
     Dates: start: 19991008, end: 20001021
  9. SOLIAN [Concomitant]
     Dates: start: 20061218
  10. TRAZODONE HCL [Concomitant]
     Route: 048
     Dates: start: 20050101
  11. TRAZODONE HCL [Concomitant]
     Route: 048
     Dates: start: 20000803, end: 20010817
  12. TRAZODONE HCL [Concomitant]
     Route: 048
     Dates: start: 20000510, end: 20010524
  13. ZOLOFT [Concomitant]
  14. GLUCOPHAGE [Concomitant]
  15. NORTRIPTYLINE [Concomitant]
     Route: 048
     Dates: start: 20000803, end: 20010817
  16. METOCLOPRAMIDE [Concomitant]
     Route: 042
     Dates: start: 20000725, end: 20000727
  17. CONJUGATED ESTROGENS [Concomitant]
     Route: 048
     Dates: start: 19991203, end: 19991205
  18. CLONAZEPAM [Concomitant]
     Route: 048
     Dates: start: 19991203, end: 19991222
  19. FLUOXETINE [Concomitant]
     Route: 048
     Dates: start: 19991103, end: 20001116
  20. FUROSEMIDE [Concomitant]
     Route: 048
     Dates: start: 19990714, end: 20000727
  21. PLAVIX [Concomitant]
     Route: 048
     Dates: start: 20051001
  22. SYNTHROID [Concomitant]
  23. PRINIVIL [Concomitant]
  24. FLAGYL [Concomitant]
     Dates: end: 20051023
  25. CIPRO [Concomitant]
     Dates: end: 20051023
  26. PROTONIX [Concomitant]
  27. ZOCOR [Concomitant]
  28. LORTAB [Concomitant]

REACTIONS (6)
  - ASTHENIA [None]
  - CEREBROVASCULAR ACCIDENT [None]
  - DIABETES MELLITUS [None]
  - MYOCARDIAL INFARCTION [None]
  - PAIN [None]
  - PAIN IN EXTREMITY [None]
